FAERS Safety Report 5310669-5 (Version None)
Quarter: 2007Q2

REPORT INFORMATION
  Report Type: 
  Country: None (occurrence: None)
  Receive Date: 20070428
  Receipt Date: 20070416
  Transmission Date: 20071010
  Serious: Yes (Other)
  Sender: FDA-Public Use
  Company Number: PH-PFIZER INC-2007031286

PATIENT
  Age: 50 Year
  Sex: Male

DRUGS (12)
  1. LIPITOR [Suspect]
     Indication: DYSLIPIDAEMIA
     Route: 048
     Dates: start: 20001108, end: 20061101
  2. LOPID [Suspect]
     Route: 048
     Dates: start: 20040501, end: 20061001
  3. CRESTOR [Suspect]
     Indication: DYSLIPIDAEMIA
     Dosage: TEXT:10MG
     Route: 048
     Dates: start: 20030801, end: 20060925
  4. LOSARTAN POTASSIUM AND HYDROCHLOROTHIAZIDE [Concomitant]
     Dates: start: 20050701
  5. ASPIRIN [Concomitant]
  6. ALLOPURINOL [Concomitant]
     Dates: start: 20001101, end: 20061101
  7. COZAAR [Concomitant]
     Dates: start: 20001201
  8. HYZAAR [Concomitant]
     Dates: start: 20040501, end: 20050701
  9. GLUCOSAMINE W/CHONDROITIN SULFATES [Concomitant]
     Dates: start: 20050701
  10. MOBIC [Concomitant]
     Dates: start: 20050701
  11. ANTIDEPRESSANTS [Concomitant]
     Dates: start: 20060601
  12. GLUCOSAMINE [Concomitant]
     Dates: start: 20060601

REACTIONS (4)
  - FIBROMYALGIA [None]
  - HEPATITIS [None]
  - NEUROPATHY PERIPHERAL [None]
  - POLYMYOSITIS [None]
